FAERS Safety Report 9611046 (Version 5)
Quarter: 2014Q1

REPORT INFORMATION
  Report Type: Spontaneous
  Country: JP (occurrence: JP)
  Receive Date: 20131009
  Receipt Date: 20140203
  Transmission Date: 20141002
  Serious: Yes (Hospitalization, Other)
  Sender: FDA-Public Use
  Company Number: JP-009507513-1310JPN003011

PATIENT
  Age: 75 Year
  Sex: Female
  Weight: 57 kg

DRUGS (5)
  1. REBETOL [Suspect]
     Indication: HEPATITIS C
     Dosage: 200 MG, QD
     Route: 048
     Dates: start: 20100512, end: 20101027
  2. PEGINTRON [Suspect]
     Indication: HEPATITIS C
     Dosage: 25 MICROGRAM, QW
     Route: 058
     Dates: start: 20100512, end: 20101027
  3. URSO [Concomitant]
     Indication: CHRONIC HEPATITIS
     Dosage: 300 MG, TID
     Route: 048
  4. SELBEX [Concomitant]
     Dosage: 50 MG, TID
     Route: 048
  5. AMLODIN (AMLODIPINE BESYLATE) [Concomitant]
     Indication: HYPERTENSION
     Dosage: 5 MG, QD
     Route: 048

REACTIONS (1)
  - Thalamus haemorrhage [Recovering/Resolving]
